FAERS Safety Report 9125690 (Version 1)
Quarter: 2013Q1

REPORT INFORMATION
  Report Type: Spontaneous
  Country: CA (occurrence: CA)
  Receive Date: 20130227
  Receipt Date: 20130227
  Transmission Date: 20140127
  Serious: Yes (Death)
  Sender: FDA-Public Use
  Company Number: CA-009507513-1302CAN012802

PATIENT
  Sex: Male

DRUGS (1)
  1. INTRON A [Suspect]
     Indication: T-CELL LYMPHOMA
     Dosage: UNK
     Route: 058

REACTIONS (1)
  - Death [Fatal]
